FAERS Safety Report 8163532-9 (Version None)
Quarter: 2012Q1

REPORT INFORMATION
  Report Type: 
  Country: None (occurrence: None)
  Receive Date: 20120224
  Receipt Date: 20120217
  Transmission Date: 20120608
  Serious: Yes (Other)
  Sender: FDA-Public Use
  Company Number: IE-JNJFOC-20110611172

PATIENT
  Sex: Female

DRUGS (6)
  1. ACETAMINOPHEN AND TRAMADOL HCL [Concomitant]
  2. ACETAMINOPHEN AND TRAMADOL HCL [Concomitant]
  3. LYRICA [Concomitant]
  4. METHOTREXATE [Concomitant]
     Route: 048
  5. GLUCOPHAGE [Concomitant]
  6. SIMPONI [Suspect]
     Indication: ANKYLOSING SPONDYLITIS
     Route: 058
     Dates: start: 20110429, end: 20110520

REACTIONS (3)
  - DRUG INEFFECTIVE [None]
  - NEURALGIA [None]
  - ADVERSE DRUG REACTION [None]
